FAERS Safety Report 5740164-0 (Version None)
Quarter: 2008Q2

REPORT INFORMATION
  Report Type: 
  Country: None (occurrence: None)
  Receive Date: 20080516
  Receipt Date: 20080506
  Transmission Date: 20081010
  Serious: Yes (Other)
  Sender: FDA-Public Use
  Company Number: US-ROCHE-548699

PATIENT
  Sex: Female
  Weight: 73.9 kg

DRUGS (5)
  1. ACCUTANE [Suspect]
     Indication: ACNE
     Route: 065
     Dates: start: 19951113, end: 19960309
  2. MINOCYCLINE HCL [Concomitant]
  3. CIPRO [Concomitant]
  4. KEFLEX [Concomitant]
  5. BACTROBAN [Concomitant]

REACTIONS (16)
  - ANAEMIA [None]
  - ANXIETY [None]
  - CHEILITIS [None]
  - CHOLANGITIS SCLEROSING [None]
  - CHOLANGITIS SUPPURATIVE [None]
  - COLITIS ULCERATIVE [None]
  - CONSTIPATION [None]
  - CROHN'S DISEASE [None]
  - DEPRESSION [None]
  - EMOTIONAL DISTRESS [None]
  - HEPATIC FAILURE [None]
  - INFLAMMATORY BOWEL DISEASE [None]
  - IRRITABLE BOWEL SYNDROME [None]
  - OBSESSIVE-COMPULSIVE DISORDER [None]
  - PANCYTOPENIA [None]
  - XEROSIS [None]
